FAERS Safety Report 6303683-4 (Version None)
Quarter: 2009Q3

REPORT INFORMATION
  Report Type: 
  Country: None (occurrence: None)
  Receive Date: 20090807
  Receipt Date: 20090807
  Transmission Date: 20100115
  Serious: Yes (Other)
  Sender: FDA-Public Use
  Company Number: None

PATIENT
  Age: 50 Year
  Sex: Female
  Weight: 58.9676 kg

DRUGS (1)
  1. TOPIRAMATE [Suspect]
     Indication: MIGRAINE PROPHYLAXIS
     Dosage: 50MG BID PO
     Route: 048
     Dates: start: 20090526, end: 20090804

REACTIONS (4)
  - HEADACHE [None]
  - IMPAIRED WORK ABILITY [None]
  - MIGRAINE [None]
  - PRODUCT SUBSTITUTION ISSUE [None]
